FAERS Safety Report 8970228 (Version 1)
Quarter: 2012Q4

REPORT INFORMATION
  Report Type: 
  Country: US (occurrence: US)
  Receive Date: 20121218
  Receipt Date: 20121218
  Transmission Date: 20130627
  Serious: No
  Sender: FDA-Public Use
  Company Number: US-GLAXOSMITHKLINE-A0959034A

PATIENT
  Sex: Male

DRUGS (2)
  1. NICORETTE [Suspect]
     Indication: PRODUCT USED FOR UNKNOWN INDICATION
     Route: 002
  2. NICORETTE [Suspect]
     Indication: PRODUCT USED FOR UNKNOWN INDICATION
     Dosage: 4MG Single dose

REACTIONS (7)
  - Dyspepsia [Recovered/Resolved]
  - Chest discomfort [Unknown]
  - Throat irritation [Unknown]
  - Dry throat [Unknown]
  - Chest discomfort [Unknown]
  - Ill-defined disorder [Unknown]
  - Myocardial infarction [Unknown]
